FAERS Safety Report 7966156-9 (Version None)
Quarter: 2011Q4

REPORT INFORMATION
  Report Type: 
  Country: None (occurrence: None)
  Receive Date: 20111208
  Receipt Date: 20111206
  Transmission Date: 20120403
  Serious: Yes (Other)
  Sender: FDA-Public Use
  Company Number: US-PFIZER INC-2011285355

PATIENT
  Sex: Female

DRUGS (5)
  1. ZOLOFT [Suspect]
     Indication: DEPRESSION
     Dosage: UNK
     Dates: start: 20111101
  2. ZOLOFT [Suspect]
     Indication: EMOTIONAL DISORDER
  3. CYMBALTA [Suspect]
     Dosage: UNK
  4. LEXAPRO [Suspect]
     Dosage: UNK
  5. ZOLOFT [Suspect]
     Indication: SOCIAL AVOIDANT BEHAVIOUR

REACTIONS (4)
  - EMOTIONAL DISORDER [None]
  - DEPRESSION [None]
  - SOCIAL AVOIDANT BEHAVIOUR [None]
  - DRUG INEFFECTIVE [None]
